FAERS Safety Report 4999692-8 (Version None)
Quarter: 2006Q2

REPORT INFORMATION
  Report Type: 
  Country: None (occurrence: None)
  Receive Date: 20060509
  Receipt Date: 20060428
  Transmission Date: 20061013
  Serious: Yes (Hospitalization)
  Sender: FDA-Public Use
  Company Number: 200612365BWH

PATIENT
  Sex: Male

DRUGS (1)
  1. NEXAVAR [Suspect]
     Dosage: A FEW MONTHS

REACTIONS (4)
  - ANURIA [None]
  - CALCULUS URINARY [None]
  - HYDRONEPHROSIS [None]
  - RENAL FAILURE ACUTE [None]
